FAERS Safety Report 12696592 (Version 3)
Quarter: 2016Q4

REPORT INFORMATION
  Report Type: Spontaneous
  Country: US (occurrence: US)
  Receive Date: 20160830
  Receipt Date: 20161206
  Transmission Date: 20170207
  Serious: Yes (Life-Threatening, Hospitalization, Other)
  Sender: FDA-Public Use
  Company Number: US-SHIRE-US201609768

PATIENT
  Age: 43 Year
  Sex: Female
  Weight: 52 kg

DRUGS (16)
  1. CALCITRIOL. [Concomitant]
     Active Substance: CALCITRIOL
     Indication: HYPOPARATHYROIDISM
     Dosage: 0.5 ?G, 1X/DAY:QD
     Route: 065
  2. NATPARA (PARATHYROID HORMONE) [Suspect]
     Active Substance: PARATHYROID HORMONE
     Dosage: 100 ?G, 1X/DAY:QD
     Route: 058
     Dates: start: 20160510, end: 20160730
  3. CYTOMEL [Concomitant]
     Active Substance: LIOTHYRONINE SODIUM
     Indication: HYPOTHYROIDISM
     Dosage: 5 ?G, 1X/DAY:QD
     Route: 048
     Dates: start: 1998
  4. NATPARA (PARATHYROID HORMONE) [Suspect]
     Active Substance: PARATHYROID HORMONE
     Indication: HYPOPARATHYROIDISM
     Dosage: UNK, UNKNOWN
     Route: 058
     Dates: start: 20151010
  5. CALCIUM CITRATE [Concomitant]
     Active Substance: CALCIUM CITRATE
     Indication: HYPERCALCAEMIA
     Dosage: 3800 MG, 1X/DAY:QD IN 4 DIVIDED DOSES
     Route: 048
     Dates: start: 20160803, end: 201608
  6. LEVOTHYROXINE. [Concomitant]
     Active Substance: LEVOTHYROXINE
     Indication: HYPOTHYROIDISM
     Dosage: 0.112 MG, 1X/DAY:QD
     Route: 048
     Dates: start: 1998
  7. SINGULAIR [Concomitant]
     Active Substance: MONTELUKAST SODIUM
     Indication: ASTHMA
     Dosage: UNK, AS REQ^D
     Route: 065
  8. CALCITRIOL. [Concomitant]
     Active Substance: CALCITRIOL
     Indication: HYPERCALCAEMIA
     Dosage: 1 ?G, 1X/DAY:QD
     Route: 065
     Dates: start: 20160803, end: 201608
  9. CALCITRIOL. [Concomitant]
     Active Substance: CALCITRIOL
     Dosage: 0.25 ?G, 1X/DAY:QD
     Route: 065
     Dates: start: 20160812
  10. NATPARA (PARATHYROID HORMONE) [Suspect]
     Active Substance: PARATHYROID HORMONE
     Dosage: 100 ?G, 1X/DAY:QD
     Route: 058
     Dates: start: 20160803
  11. CALCIUM CITRATE [Concomitant]
     Active Substance: CALCIUM CITRATE
     Indication: HYPOPARATHYROIDISM
     Dosage: 400 MG, 2X/DAY:BID
     Route: 048
     Dates: start: 1998, end: 201608
  12. CALCIUM CITRATE [Concomitant]
     Active Substance: CALCIUM CITRATE
     Indication: HYPOCALCAEMIA
     Dosage: 800 MG, 2X/DAY:BID
     Route: 048
     Dates: start: 20160801, end: 201608
  13. CALCITRIOL. [Concomitant]
     Active Substance: CALCITRIOL
     Indication: HYPOCALCAEMIA
     Dosage: 0.75 ?G, 1X/DAY:QD
     Route: 065
     Dates: start: 20160801, end: 20160801
  14. CALCIUM CITRATE [Concomitant]
     Active Substance: CALCIUM CITRATE
     Dosage: 400 MG, 2X/DAY:BID
     Route: 048
     Dates: start: 20160812
  15. CALCITRIOL. [Concomitant]
     Active Substance: CALCITRIOL
     Dosage: 1.25 ?G, 1X/DAY:QD (MORNING 0.75 MCG AND 0.5 MCG AT BEDTIME)
     Route: 065
     Dates: start: 201608, end: 201608
  16. LUNESTA [Concomitant]
     Active Substance: ESZOPICLONE
     Indication: INSOMNIA
     Dosage: 3 MG, AS REQ^D
     Route: 065

REACTIONS (9)
  - Asthma [Recovered/Resolved]
  - Dehydration [Recovered/Resolved]
  - Thrombophlebitis superficial [Recovered/Resolved]
  - Product supply issue [Recovered/Resolved]
  - Hypocalcaemia [Recovered/Resolved]
  - Hypercalcaemia [Recovered/Resolved]
  - Staphylococcal sepsis [Recovered/Resolved]
  - Drug dose omission [Recovered/Resolved]
  - Incorrect product storage [Unknown]

NARRATIVE: CASE EVENT DATE: 20160730
